FAERS Safety Report 18366588 (Version 1)
Quarter: 2020Q4

REPORT INFORMATION
  Report Type: Spontaneous
  Country: FR (occurrence: FR)
  Receive Date: 20201009
  Receipt Date: 20201009
  Transmission Date: 20210114
  Serious: Yes (Hospitalization, Other)
  Sender: FDA-Public Use
  Company Number: FR-PFIZER INC-2020384725

PATIENT
  Age: 58 Year
  Sex: Female

DRUGS (6)
  1. OXALIPLATIN. [Suspect]
     Active Substance: OXALIPLATIN
     Indication: PANCREATIC CARCINOMA METASTATIC
     Dosage: 85 MG/M2, (200 MG/40 ML)
     Route: 065
  2. INEXIUM [ESOMEPRAZOLE MAGNESIUM] [Concomitant]
     Active Substance: ESOMEPRAZOLE MAGNESIUM
     Dosage: 40 MG, 1X/DAY, AT NIGHT)
     Dates: start: 20200227
  3. ESOMEPRAZOLE ALMUS [ESOMEPRAZOLE MAGNESIUM] [Concomitant]
     Dosage: 40 MG, 1X/DAY, 1 TABLET AT NIGHT
  4. ATROVENT [Concomitant]
     Active Substance: IPRATROPIUM BROMIDE
     Dosage: 20 UG, 3X/DAY
  5. BRICANYL [Concomitant]
     Active Substance: TERBUTALINE SULFATE
     Dosage: 1 UG, 3X/DAY, (STRENGTH: 0,5MG/1ML)
  6. PANCREATIN [Concomitant]
     Active Substance: PANCRELIPASE
     Dosage: UNK

REACTIONS (6)
  - Speech disorder [Recovered/Resolved]
  - Erythema [Recovered/Resolved]
  - Oxygen saturation decreased [Recovered/Resolved]
  - Oropharyngeal pain [Recovered/Resolved]
  - Cough [Recovered/Resolved]
  - Respiratory distress [Recovered/Resolved]

NARRATIVE: CASE EVENT DATE: 20200715
